FAERS Safety Report 19319917 (Version 1)
Quarter: 2021Q2

REPORT INFORMATION
  Report Type: Spontaneous
  Country: PL (occurrence: PL)
  Receive Date: 20210527
  Receipt Date: 20210527
  Transmission Date: 20210717
  Serious: Yes (Other)
  Sender: FDA-Public Use
  Company Number: PL-HQ SPECIALTY-PL-2021INT000095

PATIENT
  Age: 49 Year
  Sex: Female

DRUGS (3)
  1. LEVETIRACETAM. [Suspect]
     Active Substance: LEVETIRACETAM
     Indication: STIFF PERSON SYNDROME
     Dosage: UNK, MAX TOLERATED DAILY DOSE OF 1,500 MG
     Route: 065
  2. DIAZEPAM. [Concomitant]
     Active Substance: DIAZEPAM
     Indication: STIFF PERSON SYNDROME
     Dosage: UNK
     Route: 065
  3. GABAPENTIN. [Concomitant]
     Active Substance: GABAPENTIN
     Indication: STIFF PERSON SYNDROME
     Dosage: UNK
     Route: 065

REACTIONS (1)
  - Seizure [Unknown]
